FAERS Safety Report 12633956 (Version 1)
Quarter: 2016Q3

REPORT INFORMATION
  Report Type: Spontaneous
  Country: US (occurrence: US)
  Receive Date: 20160808
  Receipt Date: 20160808
  Transmission Date: 20161109
  Serious: No
  Sender: FDA-Public Use
  Company Number: US-PFIZER INC-2016366976

PATIENT
  Age: 80 Year
  Sex: Female
  Weight: 46.26 kg

DRUGS (2)
  1. ZYVOX [Suspect]
     Active Substance: LINEZOLID
     Indication: URINARY TRACT INFECTION ENTEROCOCCAL
     Dosage: 600MG ONCE DAILY FOR 7 DAYS
     Dates: start: 201607, end: 201607
  2. LEVODOPA-CARBIDOPA [Concomitant]
     Active Substance: CARBIDOPA\LEVODOPA
     Indication: PARKINSON^S DISEASE
     Dosage: [CARBIDOPA 25MG]/[LEVODOPA 100MG]ONE TABLET THREE TIMES DAILY
     Route: 048
     Dates: start: 2013, end: 201607

REACTIONS (5)
  - Fatigue [Unknown]
  - Confusional state [Unknown]
  - Blood pressure increased [Unknown]
  - Off label use [Unknown]
  - Myalgia [Unknown]

NARRATIVE: CASE EVENT DATE: 201607
